FAERS Safety Report 9797535 (Version 2)
Quarter: 2014Q1

REPORT INFORMATION
  Report Type: Report from Study
  Country: CL (occurrence: CL)
  Receive Date: 20140106
  Receipt Date: 20140326
  Transmission Date: 20141002
  Serious: Yes (Hospitalization, Other)
  Sender: FDA-Public Use
  Company Number: PHHY2013CL151563

PATIENT
  Age: 74 Year
  Sex: Female
  Weight: 43 kg

DRUGS (6)
  1. GLIVEC [Suspect]
     Indication: CHRONIC MYELOID LEUKAEMIA
     Dosage: 400 MG, UNK
     Route: 048
     Dates: start: 20041110
  2. LEVOTHYROXINE [Concomitant]
     Indication: HYPOTHYROIDISM
     Dosage: 125 UG, UNK
     Route: 048
  3. ERYTHROPOIETIN [Concomitant]
     Indication: ANAEMIA
     Dosage: 2000 U, EACH 10 DAYS
     Route: 058
  4. OMEPRAZOLE [Concomitant]
     Dosage: 20 MG, UNK
     Route: 048
  5. AMITRIPTYLINE [Concomitant]
     Dosage: 25 MG, UNK
     Route: 048
  6. NIFEDIPINE [Concomitant]
     Indication: HYPERTENSION
     Dosage: 20 MG, UNK
     Route: 048

REACTIONS (6)
  - Abasia [Unknown]
  - Malaise [Unknown]
  - Dyspnoea [Unknown]
  - Renal failure [Recovering/Resolving]
  - Deep vein thrombosis [Recovering/Resolving]
  - Diarrhoea [Unknown]
